FAERS Safety Report 20483323 (Version 1)
Quarter: 2022Q1

REPORT INFORMATION
  Report Type: Report from Study
  Country: IT (occurrence: IT)
  Receive Date: 20220217
  Receipt Date: 20220217
  Transmission Date: 20220423
  Serious: Yes (Other)
  Sender: FDA-Public Use
  Company Number: None

PATIENT
  Age: 61 Year
  Sex: Male
  Weight: 61 kg

DRUGS (3)
  1. FLUOROURACIL [Suspect]
     Active Substance: FLUOROURACIL
     Indication: Adenocarcinoma gastric
     Dosage: FLUOROURACILE TEVA 5 G/100 ML SOLUZIONE PER INFUSIONE; UNIT DOSE: 570MG
     Route: 040
     Dates: start: 20210324
  2. FLUOROURACIL [Suspect]
     Active Substance: FLUOROURACIL
     Indication: Adenocarcinoma gastric
     Dosage: UNIT DOSE: 3400MG
     Route: 041
     Dates: start: 20210324
  3. LEVOLEUCOVORIN CALCIUM [Concomitant]
     Active Substance: LEVOLEUCOVORIN CALCIUM
     Indication: Adenocarcinoma gastric
     Dosage: UNIT DOSE: 280MG; CALCIO LEVOFOLINATO TEVA 175 MG POLVERE PER SOLUZIONE PER INFUSIONE
     Dates: start: 20210324

REACTIONS (2)
  - Asthenia [Unknown]
  - Vomiting [Unknown]

NARRATIVE: CASE EVENT DATE: 20220119
